FAERS Safety Report 4449203-0 (Version None)
Quarter: 2004Q3

REPORT INFORMATION
  Report Type: 
  Country: None (occurrence: None)
  Receive Date: 20040910
  Receipt Date: 20040831
  Transmission Date: 20050211
  Serious: Yes (Hospitalization)
  Sender: FDA-Public Use
  Company Number: 2004061055

PATIENT
  Age: 68 Year
  Sex: Female

DRUGS (4)
  1. SULPERAZONE (CEFOPERAZONE, SULBACTAM) [Suspect]
     Indication: STRESS ULCER
     Dosage: 9 GRAM (3 GRAM, 3 IN 1 D)
     Dates: start: 20040826
  2. DEXAMETHASOME (DEXAMETHASOME) [Concomitant]
  3. ESOMEPRAZOLE (ESOMEPRAZOLE) [Concomitant]
  4. COMBIVENT [Concomitant]

REACTIONS (4)
  - GASTRITIS [None]
  - HYPOTENSION [None]
  - MELAENA [None]
  - STRESS ULCER [None]
